FAERS Safety Report 6039235-3 (Version None)
Quarter: 2009Q1

REPORT INFORMATION
  Report Type: 
  Country: None (occurrence: None)
  Receive Date: 20090115
  Receipt Date: 20090106
  Transmission Date: 20090719
  Serious: Yes (Hospitalization, Other)
  Sender: FDA-Public Use
  Company Number: PHEH2007US04432

PATIENT
  Sex: Female

DRUGS (8)
  1. AREDIA [Suspect]
     Indication: BONE NEOPLASM MALIGNANT
     Dosage: UNK
     Dates: end: 20060101
  2. FEMARA [Concomitant]
  3. ASPIRIN [Concomitant]
  4. NORVASC [Concomitant]
  5. TOPROL-XL [Concomitant]
  6. FLUOXETINE [Concomitant]
  7. LASIX [Concomitant]
  8. ARANESP [Concomitant]

REACTIONS (16)
  - ANAEMIA [None]
  - ANHEDONIA [None]
  - ANXIETY [None]
  - BONE DISORDER [None]
  - CARDIAC FAILURE CONGESTIVE [None]
  - DEFORMITY [None]
  - EMOTIONAL DISTRESS [None]
  - INFECTION [None]
  - MENTAL DISORDER [None]
  - ORAL SURGERY [None]
  - OSTEONECROSIS [None]
  - PAIN [None]
  - PURULENT DISCHARGE [None]
  - RENAL FAILURE [None]
  - SWELLING [None]
  - TOOTH EXTRACTION [None]
